FAERS Safety Report 6163346-5 (Version None)
Quarter: 2009Q2

REPORT INFORMATION
  Report Type: 
  Country: None (occurrence: None)
  Receive Date: 20090420
  Receipt Date: 20090414
  Transmission Date: 20091009
  Serious: Yes (Other)
  Sender: FDA-Public Use
  Company Number: 2009SP008033

PATIENT
  Age: 2 Year
  Sex: Female

DRUGS (4)
  1. NEOCLARITYN (DESLORATADINE ) (DESLORATADINE) [Suspect]
     Indication: ANGIOEDEMA
     Dosage: 1.25 MG; QD; PO
     Route: 048
     Dates: start: 20090310, end: 20090315
  2. NEOCLARITYN (DESLORATADINE ) (DESLORATADINE) [Suspect]
     Indication: ECZEMA
     Dosage: 1.25 MG; QD; PO
     Route: 048
     Dates: start: 20090310, end: 20090315
  3. EPADERM (CON.) [Concomitant]
  4. EUMOVATE (CON.) [Concomitant]

REACTIONS (5)
  - ASTHENIA [None]
  - COORDINATION ABNORMAL [None]
  - DIARRHOEA [None]
  - FALL [None]
  - GRIP STRENGTH DECREASED [None]
